FAERS Safety Report 25010386 (Version 1)
Quarter: 2025Q1

REPORT INFORMATION
  Report Type: Spontaneous
  Country: PE (occurrence: PE)
  Receive Date: 20250225
  Receipt Date: 20250225
  Transmission Date: 20250409
  Serious: Yes (Hospitalization, Other)
  Sender: AMGEN
  Company Number: PE-PFIZER INC-PV202500020529

PATIENT
  Age: 62 Year
  Sex: Female

DRUGS (1)
  1. ENBREL [Suspect]
     Active Substance: ETANERCEPT
     Indication: Product used for unknown indication
     Dosage: 50 ML, WEEKLY
     Route: 058
     Dates: start: 202405, end: 202501

REACTIONS (6)
  - Infection [Unknown]
  - Cellulitis [Not Recovered/Not Resolved]
  - Mental disorder [Recovering/Resolving]
  - Peripheral swelling [Unknown]
  - Dysstasia [Unknown]
  - Pyrexia [Unknown]

NARRATIVE: CASE EVENT DATE: 20250129
